FAERS Safety Report 8782062 (Version 2)
Quarter: 2012Q4

REPORT INFORMATION
  Report Type: Report from Study
  Country: US (occurrence: US)
  Receive Date: 20120913
  Receipt Date: 20121106
  Transmission Date: 20130627
  Serious: Yes (Other)
  Sender: FDA-Public Use
  Company Number: US-US-EMD SERONO, INC.-7159566

PATIENT
  Sex: Female
  Weight: 71 kg

DRUGS (3)
  1. REBIF [Suspect]
     Indication: MULTIPLE SCLEROSIS
     Route: 058
     Dates: start: 20091229
  2. MIRALAX [Concomitant]
     Indication: CONSTIPATION
  3. IBUPROFEN [Concomitant]
     Indication: PAIN

REACTIONS (1)
  - Bursa calcification [Recovering/Resolving]
